FAERS Safety Report 9502243 (Version 1)
Quarter: 2013Q3

REPORT INFORMATION
  Report Type: Spontaneous
  Country: US (occurrence: US)
  Receive Date: 20130906
  Receipt Date: 20130906
  Transmission Date: 20140515
  Serious: Yes (Other)
  Sender: FDA-Public Use
  Company Number: US-ROCHE-1270707

PATIENT
  Sex: 0

DRUGS (1)
  1. OMALIZUMAB [Suspect]
     Indication: URTICARIA
     Route: 065

REACTIONS (1)
  - Urticaria [Unknown]
